FAERS Safety Report 5285647-5 (Version None)
Quarter: 2007Q1

REPORT INFORMATION
  Report Type: 
  Country: None (occurrence: None)
  Receive Date: 20070116
  Receipt Date: 20061206
  Transmission Date: 20070707
  Serious: No
  Sender: FDA-Public Use
  Company Number: 2006SP004296

PATIENT
  Age: 36 Year
  Sex: Male
  Weight: 79.3795 kg

DRUGS (6)
  1. LUNESTA [Suspect]
     Indication: INSOMNIA
     Dosage: 6 MG;ORAL
     Route: 048
     Dates: start: 20060501, end: 20061204
  2. TOPAMAX [Concomitant]
  3. LAMOTRIGINE [Concomitant]
  4. WELLBUTRIN [Concomitant]
  5. CYMBALTA [Concomitant]
  6. REQUIP [Concomitant]

REACTIONS (2)
  - DRUG WITHDRAWAL SYNDROME [None]
  - HYPERHIDROSIS [None]
